FAERS Safety Report 15125240 (Version 5)
Quarter: 2018Q4

REPORT INFORMATION
  Report Type: Report from Study
  Country: None (occurrence: US)
  Receive Date: 20180710
  Receipt Date: 20181010
  Transmission Date: 20190204
  Serious: Yes (Hospitalization)
  Sender: FDA-Public Use
  Company Number: US-ABBVIE-18K-163-2411549-00

PATIENT
  Age: 37 Year
  Sex: Female

DRUGS (2)
  1. PREDNISONE. [Concomitant]
     Active Substance: PREDNISONE
     Indication: PRODUCT USED FOR UNKNOWN INDICATION
  2. HUMIRA [Suspect]
     Active Substance: ADALIMUMAB
     Indication: RHEUMATOID ARTHRITIS
     Route: 058
     Dates: start: 20180615, end: 201809

REACTIONS (33)
  - Musculoskeletal stiffness [Not Recovered/Not Resolved]
  - Middle insomnia [Not Recovered/Not Resolved]
  - Productive cough [Unknown]
  - White blood cell count increased [Unknown]
  - Peripheral swelling [Not Recovered/Not Resolved]
  - Peripheral swelling [Recovering/Resolving]
  - Gait disturbance [Not Recovered/Not Resolved]
  - Fatigue [Not Recovered/Not Resolved]
  - Injection site pain [Unknown]
  - Pain in extremity [Not Recovered/Not Resolved]
  - Myalgia [Not Recovered/Not Resolved]
  - Feeling hot [Not Recovered/Not Resolved]
  - Weight decreased [Unknown]
  - Swelling [Recovering/Resolving]
  - Chills [Unknown]
  - Hypoaesthesia [Not Recovered/Not Resolved]
  - Depression [Unknown]
  - Hypoaesthesia [Recovered/Resolved]
  - Drug ineffective [Not Recovered/Not Resolved]
  - Painful respiration [Not Recovered/Not Resolved]
  - Sneezing [Unknown]
  - Joint stiffness [Unknown]
  - Hyperhidrosis [Not Recovered/Not Resolved]
  - Sputum discoloured [Unknown]
  - Arthralgia [Recovering/Resolving]
  - Hypersensitivity [Unknown]
  - White blood cell count abnormal [Recovered/Resolved]
  - Pyrexia [Unknown]
  - Loss of personal independence in daily activities [Not Recovered/Not Resolved]
  - Joint swelling [Recovering/Resolving]
  - Anxiety [Unknown]
  - Arthralgia [Not Recovered/Not Resolved]
  - Rheumatoid arthritis [Unknown]

NARRATIVE: CASE EVENT DATE: 2018
